FAERS Safety Report 9012376 (Version 1)
Quarter: 2013Q1

REPORT INFORMATION
  Report Type: Spontaneous
  Country: DE (occurrence: DE)
  Receive Date: 20130114
  Receipt Date: 20130114
  Transmission Date: 20140127
  Serious: Yes (Other)
  Sender: FDA-Public Use
  Company Number: DE-PFIZER INC-2013011011

PATIENT
  Age: 74 Year
  Sex: Female

DRUGS (1)
  1. SORTIS [Suspect]
     Indication: CARDIAC OPERATION
     Dosage: 10 MG, DAILY
     Dates: start: 201112

REACTIONS (2)
  - Abasia [Unknown]
  - Pain in extremity [Unknown]
